FAERS Safety Report 8832888 (Version 1)
Quarter: 2012Q4

REPORT INFORMATION
  Report Type: Spontaneous
  Country: US (occurrence: None)
  Receive Date: 20121009
  Receipt Date: 20121009
  Transmission Date: 20130627
  Serious: Yes (Other)
  Sender: FDA-Public Use
  Company Number: None

PATIENT
  Sex: Female

DRUGS (2)
  1. HAWAIIAN TROPIC [Suspect]
     Indication: SUNBURN PROPHYLAXIS
     Dosage: no dosage limitations
     Route: 061
     Dates: start: 20120525, end: 20120529
  2. HAWAIIAN TROPIC [Suspect]
     Indication: PROPHYLAXIS
     Dosage: no dosage limitations
     Route: 061
     Dates: start: 20120525, end: 20120529

REACTIONS (1)
  - Hypersensitivity [None]
